FAERS Safety Report 9387913 (Version 1)
Quarter: 2013Q3

REPORT INFORMATION
  Report Type: Spontaneous
  Country: US (occurrence: None)
  Receive Date: 20130701
  Receipt Date: 20130701
  Transmission Date: 20140515
  Serious: Yes (Hospitalization)
  Sender: FDA-Public Use
  Company Number: 2013P1010536

PATIENT
  Age: 49 Year
  Sex: Male

DRUGS (4)
  1. PLAQUENIL [Suspect]
     Indication: SYSTEMIC LUPUS ERYTHEMATOSUS
     Route: 048
     Dates: start: 20120630, end: 20120731
  2. REBAMIPIDE (REBAMIPIDE) (TABLET) [Concomitant]
  3. ADOFEED [Concomitant]
  4. DIMETHYL POLYSILOXANE [Concomitant]

REACTIONS (5)
  - Skin ulcer [None]
  - Impaired healing [None]
  - Cellulitis [None]
  - Bacterial infection [None]
  - Calcinosis [None]
